FAERS Safety Report 9296513 (Version 1)
Quarter: 2013Q2

REPORT INFORMATION
  Report Type: Spontaneous
  Country: US (occurrence: US)
  Receive Date: 20130517
  Receipt Date: 20130517
  Transmission Date: 20140414
  Serious: Yes (Hospitalization, Other)
  Sender: FDA-Public Use
  Company Number: US-ELI_LILLY_AND_COMPANY-US201304008334

PATIENT
  Age: 66 Year
  Sex: Female

DRUGS (17)
  1. FORTEO [Suspect]
     Indication: BONE LOSS
     Dosage: UNK, QD
     Dates: start: 20130421, end: 20130421
  2. ATIVAN [Concomitant]
     Dosage: 1 MG, TID
  3. CLARITIN [Concomitant]
  4. SINGULAIR [Concomitant]
     Dosage: UNK, QD
  5. BENICAR [Concomitant]
  6. POTASSIUM [Concomitant]
     Dosage: UNK, 3/W
  7. LASIX [Concomitant]
     Dosage: UNK, 3/W
  8. IRON [Concomitant]
     Dosage: 65 MG, UNK
  9. CALCIUM W/VITAMIN D                /00944201/ [Concomitant]
  10. CINNAMON [Concomitant]
     Dosage: 1000 MG, QD
  11. COQ10 [Concomitant]
  12. VITAMIN D [Concomitant]
  13. B12 [Concomitant]
  14. MIRAPEX [Concomitant]
  15. FLEXERIL [Concomitant]
  16. ULTRAM [Concomitant]
  17. MAXALT                             /01406501/ [Concomitant]
     Dosage: UNK

REACTIONS (17)
  - Gastroenteritis viral [Unknown]
  - Renal injury [Unknown]
  - Pyrexia [Unknown]
  - Fluid imbalance [Recovering/Resolving]
  - Hypersensitivity [Unknown]
  - Vomiting projectile [Recovered/Resolved]
  - Dysphonia [Not Recovered/Not Resolved]
  - Influenza like illness [Unknown]
  - Abdominal pain [Unknown]
  - Malaise [Unknown]
  - Feeling abnormal [Unknown]
  - Diarrhoea [Not Recovered/Not Resolved]
  - Arthralgia [Unknown]
  - Pain [Unknown]
  - Tremor [Unknown]
  - Thinking abnormal [Unknown]
  - Glycosylated haemoglobin increased [Unknown]
